FAERS Safety Report 8023040-2 (Version None)
Quarter: 2012Q1

REPORT INFORMATION
  Report Type: 
  Country: None (occurrence: None)
  Receive Date: 20120104
  Receipt Date: 20111227
  Transmission Date: 20120608
  Serious: Yes (Hospitalization)
  Sender: FDA-Public Use
  Company Number: US-BAYER-2011-034555

PATIENT
  Age: 20 Year
  Sex: Female
  Weight: 113.38 kg

DRUGS (4)
  1. COMPAZINE [Concomitant]
     Dosage: 25 MG, UNK
     Dates: start: 20070915
  2. PERCOCET [Concomitant]
     Dosage: UNK
     Route: 048
     Dates: start: 20070915
  3. BACTRIM [Concomitant]
     Dosage: UNK
     Route: 048
     Dates: start: 20070915
  4. YAZ [Suspect]
     Indication: CONTRACEPTION
     Dosage: UNK
     Route: 048
     Dates: start: 20070101, end: 20090101

REACTIONS (11)
  - GALLBLADDER DISORDER [None]
  - CHOLECYSTITIS CHRONIC [None]
  - OVARIAN CYST [None]
  - GASTROINTESTINAL DISORDER [None]
  - DYSPEPSIA [None]
  - DEPRESSION [None]
  - ANOVULATORY CYCLE [None]
  - OVARIAN ADENOMA [None]
  - PAIN [None]
  - DEFORMITY [None]
  - WEIGHT INCREASED [None]
